FAERS Safety Report 8451966-4 (Version None)
Quarter: 2012Q2

REPORT INFORMATION
  Report Type: 
  Country: None (occurrence: None)
  Receive Date: 20120620
  Receipt Date: 20120325
  Transmission Date: 20120825
  Serious: No
  Sender: FDA-Public Use
  Company Number: US-VERTEX PHARMACEUTICALS INC.-AE-2012-004411

PATIENT
  Sex: Female

DRUGS (5)
  1. RIBAVIRIN [Concomitant]
     Indication: HEPATITIS C
     Route: 048
     Dates: start: 20120307
  2. INCIVEK [Suspect]
     Indication: HEPATITIS C
     Route: 048
     Dates: start: 20120307
  3. PEGINTERFERON ALFA-2A [Concomitant]
     Indication: HEPATITIS C
     Route: 058
     Dates: start: 20120307
  4. BLOOD PRESSURE PILL [Concomitant]
  5. WATER PILL [Concomitant]

REACTIONS (6)
  - SWOLLEN TONGUE [None]
  - NAUSEA [None]
  - EATING DISORDER [None]
  - VOMITING [None]
  - HYPOTENSION [None]
  - DIZZINESS [None]
